FAERS Safety Report 6027210-4 (Version None)
Quarter: 2009Q1

REPORT INFORMATION
  Report Type: 
  Country: None (occurrence: None)
  Receive Date: 20090105
  Receipt Date: 20081225
  Transmission Date: 20090719
  Serious: Yes (Hospitalization)
  Sender: FDA-Public Use
  Company Number: B0547643A

PATIENT
  Age: 63 Year
  Sex: Male
  Weight: 55 kg

DRUGS (3)
  1. CIGANON CQ1 [Suspect]
     Dosage: 1PAT PER DAY
     Route: 062
     Dates: start: 20081119, end: 20081119
  2. CANDESARTAN CILEXETIL [Concomitant]
     Indication: HYPERTENSION
     Dosage: 8MG PER DAY
     Route: 048
     Dates: start: 20080205
  3. AMLODIPINE BESYLATE [Concomitant]
     Indication: HYPERTENSION
     Dosage: 5MG PER DAY
     Route: 048
     Dates: start: 20080205

REACTIONS (4)
  - FEELING COLD [None]
  - NAUSEA [None]
  - TOBACCO POISONING [None]
  - VOMITING [None]
